FAERS Safety Report 11567161 (Version 1)
Quarter: 2015Q3

REPORT INFORMATION
  Report Type: Spontaneous
  Country: US (occurrence: US)
  Receive Date: 20150916
  Receipt Date: 20150916
  Transmission Date: 20151125
  Serious: No
  Sender: FDA-Public Use
  Company Number: US-ELI_LILLY_AND_COMPANY-US200907001623

PATIENT
  Age: 85 Year
  Sex: Female

DRUGS (14)
  1. CLONIDIN [Concomitant]
     Active Substance: CLONIDINE
  2. LEVOTHYROXINE. [Concomitant]
     Active Substance: LEVOTHYROXINE
  3. PROTONIX [Concomitant]
     Active Substance: PANTOPRAZOLE SODIUM
  4. QUINAPRIL [Concomitant]
     Active Substance: QUINAPRIL\QUINAPRIL HYDROCHLORIDE
  5. SENOKOT [Concomitant]
     Active Substance: SENNOSIDES
  6. FORTEO [Suspect]
     Active Substance: TERIPARATIDE
     Dosage: UNK, UNK
     Dates: start: 200907
  7. NORVASC [Concomitant]
     Active Substance: AMLODIPINE BESYLATE
  8. DOXAZOSIN [Concomitant]
     Active Substance: DOXAZOSIN\DOXAZOSIN MESYLATE
  9. POTASSIUM [Concomitant]
     Active Substance: POTASSIUM
  10. FORTEO [Suspect]
     Active Substance: TERIPARATIDE
     Dosage: UNK, UNK
     Dates: start: 20090707
  11. FUROSEMIDE. [Concomitant]
     Active Substance: FUROSEMIDE
  12. FORTEO [Suspect]
     Active Substance: TERIPARATIDE
     Indication: OSTEOPOROSIS
     Dosage: UNK
     Dates: start: 200905
  13. CALCIUM [Concomitant]
     Active Substance: CALCIUM
  14. VITAMIN D [Concomitant]
     Active Substance: CHOLECALCIFEROL

REACTIONS (4)
  - Sleep disorder [Unknown]
  - Muscle spasms [Recovered/Resolved]
  - Dizziness [Unknown]
  - Arthralgia [Recovered/Resolved]

NARRATIVE: CASE EVENT DATE: 2009
